FAERS Safety Report 10386482 (Version 15)
Quarter: 2015Q4

REPORT INFORMATION
  Report Type: Report from Study
  Country: TR (occurrence: TR)
  Receive Date: 20140815
  Receipt Date: 20151123
  Transmission Date: 20160304
  Serious: Yes (Death, Hospitalization)
  Sender: FDA-Public Use
  Company Number: TR-ROCHE-1448507

PATIENT
  Age: 78 Year
  Sex: Male
  Weight: 62.5 kg

DRUGS (106)
  1. OBINUTUZUMAB [Suspect]
     Active Substance: OBINUTUZUMAB
     Indication: CHRONIC LYMPHOCYTIC LEUKAEMIA
     Dosage: CYCLE 1 DAY 1. LAST DOSE PRIOR TO SAE: 17/JUN/2014
     Route: 042
     Dates: start: 20140127
  2. BENDAMUSTINE [Suspect]
     Active Substance: BENDAMUSTINE
     Indication: CHRONIC LYMPHOCYTIC LEUKAEMIA
     Dosage: CYCLE 1 DAY1. LAST DOSE PRIOR TO SAE: 18/JUN/2014.
     Route: 042
     Dates: start: 20140127
  3. BENDAMUSTINE [Suspect]
     Active Substance: BENDAMUSTINE
     Dosage: CYCLE 6  DAY 1
     Route: 042
     Dates: start: 20140617
  4. FILGRASTIM [Concomitant]
     Active Substance: FILGRASTIM
     Dosage: 48 MU
     Route: 058
     Dates: start: 20140709, end: 20140713
  5. FILGRASTIM [Concomitant]
     Active Substance: FILGRASTIM
     Dosage: 30 MU
     Route: 058
     Dates: start: 20140715, end: 20140717
  6. DEKORT [Concomitant]
     Active Substance: DEXAMETHASONE
     Route: 042
     Dates: start: 20140225, end: 20140225
  7. AVIL [Concomitant]
     Active Substance: PHENIRAMINE
     Route: 042
     Dates: start: 20140324, end: 20140324
  8. AVIL [Concomitant]
     Active Substance: PHENIRAMINE
     Route: 042
     Dates: start: 20140325, end: 20140325
  9. AVIL [Concomitant]
     Active Substance: PHENIRAMINE
     Route: 042
     Dates: start: 20140421, end: 20140421
  10. AVIL [Concomitant]
     Active Substance: PHENIRAMINE
     Route: 042
     Dates: start: 20140422, end: 20140422
  11. GRANISETRON [Concomitant]
     Active Substance: GRANISETRON
     Route: 042
     Dates: start: 20140520, end: 20140520
  12. GRANISETRON [Concomitant]
     Active Substance: GRANISETRON
     Route: 042
     Dates: start: 20140618, end: 20140618
  13. RANITIDIN [Concomitant]
     Active Substance: RANITIDINE HYDROCHLORIDE
     Route: 042
     Dates: start: 20140210, end: 20140210
  14. RANITIDIN [Concomitant]
     Active Substance: RANITIDINE HYDROCHLORIDE
     Route: 042
     Dates: start: 20140520, end: 20140520
  15. ERYTHROCYTE [Concomitant]
     Route: 042
     Dates: start: 20140824, end: 20140824
  16. DETRUSITOL [Concomitant]
     Active Substance: TOLTERODINE TARTRATE
     Indication: URINARY INCONTINENCE
     Route: 048
     Dates: start: 20140127, end: 20140129
  17. OMNIPAQUE [Concomitant]
     Active Substance: IOHEXOL
     Route: 042
     Dates: start: 20140424, end: 20140424
  18. UROGRAFIN [Concomitant]
     Active Substance: DIATRIZOATE MEGLUMINE\DIATRIZOATE SODIUM
     Route: 048
     Dates: start: 20140903, end: 20140903
  19. OBINUTUZUMAB [Suspect]
     Active Substance: OBINUTUZUMAB
     Dosage: CYCLE 2 DAY 1
     Route: 042
     Dates: start: 20140224
  20. OBINUTUZUMAB [Suspect]
     Active Substance: OBINUTUZUMAB
     Dosage: CYCLE 6 DAY 1
     Route: 042
     Dates: start: 20140617
  21. FILGRASTIM [Concomitant]
     Active Substance: FILGRASTIM
     Dosage: 48 MU
     Route: 058
     Dates: start: 20140324, end: 20140328
  22. FILGRASTIM [Concomitant]
     Active Substance: FILGRASTIM
     Dosage: 48 MU
     Route: 058
     Dates: start: 20140618, end: 20140622
  23. DEKORT [Concomitant]
     Active Substance: DEXAMETHASONE
     Route: 042
     Dates: start: 20140224, end: 20140224
  24. DEKORT [Concomitant]
     Active Substance: DEXAMETHASONE
     Route: 042
     Dates: start: 20140325, end: 20140325
  25. AVIL [Concomitant]
     Active Substance: PHENIRAMINE
     Route: 042
     Dates: start: 20140521, end: 20140521
  26. GRANISETRON [Concomitant]
     Active Substance: GRANISETRON
     Route: 042
     Dates: start: 20140203, end: 20140203
  27. GRANISETRON [Concomitant]
     Active Substance: GRANISETRON
     Route: 042
     Dates: start: 20140325, end: 20140325
  28. RANITIDIN [Concomitant]
     Active Substance: RANITIDINE HYDROCHLORIDE
     Route: 042
     Dates: start: 20140324, end: 20140324
  29. RANITIDIN [Concomitant]
     Active Substance: RANITIDINE HYDROCHLORIDE
     Route: 042
     Dates: start: 20140618, end: 20140618
  30. UROREC [Concomitant]
     Active Substance: SILODOSIN
     Indication: URINARY INCONTINENCE
     Route: 048
     Dates: start: 20140127, end: 20140129
  31. OBINUTUZUMAB [Suspect]
     Active Substance: OBINUTUZUMAB
     Dosage: CYCLE 1 DAY 15
     Route: 042
     Dates: start: 20140210
  32. OBINUTUZUMAB [Suspect]
     Active Substance: OBINUTUZUMAB
     Dosage: CYCLE 4 DAY 1
     Route: 042
     Dates: start: 20140421
  33. BENDAMUSTINE [Suspect]
     Active Substance: BENDAMUSTINE
     Dosage: CYCLE 2 DAY 1
     Route: 042
     Dates: start: 20140224
  34. FILGRASTIM [Concomitant]
     Active Substance: FILGRASTIM
     Dosage: 48 MU
     Route: 058
     Dates: start: 20140521, end: 20140525
  35. FILGRASTIM [Concomitant]
     Active Substance: FILGRASTIM
     Dosage: 30 MU
     Route: 058
     Dates: start: 20140828, end: 20140830
  36. DEKORT [Concomitant]
     Active Substance: DEXAMETHASONE
     Route: 042
     Dates: start: 20140520, end: 20140520
  37. AVIL [Concomitant]
     Active Substance: PHENIRAMINE
     Indication: PROPHYLAXIS
     Route: 042
     Dates: start: 20140127, end: 20140127
  38. GRANISETRON [Concomitant]
     Active Substance: GRANISETRON
     Indication: PROPHYLAXIS
     Route: 042
     Dates: start: 20140127, end: 20140127
  39. GRANISETRON [Concomitant]
     Active Substance: GRANISETRON
     Route: 042
     Dates: start: 20140128, end: 20140128
  40. LEVOFLOXACIN. [Concomitant]
     Active Substance: LEVOFLOXACIN
     Route: 048
     Dates: start: 20140709, end: 20140723
  41. RANITIDIN [Concomitant]
     Active Substance: RANITIDINE HYDROCHLORIDE
     Route: 042
     Dates: start: 20140521, end: 20140521
  42. RANITIDIN [Concomitant]
     Active Substance: RANITIDINE HYDROCHLORIDE
     Route: 042
     Dates: start: 20140617, end: 20140617
  43. OMNIPAQUE [Concomitant]
     Active Substance: IOHEXOL
     Route: 042
     Dates: start: 20141229, end: 20141229
  44. DEKORT [Concomitant]
     Active Substance: DEXAMETHASONE
     Route: 042
     Dates: start: 20140617, end: 20140617
  45. AVIL [Concomitant]
     Active Substance: PHENIRAMINE
     Route: 042
     Dates: start: 20140225, end: 20140225
  46. GRANISETRON [Concomitant]
     Active Substance: GRANISETRON
     Route: 042
     Dates: start: 20140210, end: 20140210
  47. GRANISETRON [Concomitant]
     Active Substance: GRANISETRON
     Route: 042
     Dates: start: 20140421, end: 20140421
  48. GRANISETRON [Concomitant]
     Active Substance: GRANISETRON
     Route: 042
     Dates: start: 20140521, end: 20140521
  49. RANITIDIN [Concomitant]
     Active Substance: RANITIDINE HYDROCHLORIDE
     Route: 042
     Dates: start: 20140203, end: 20140203
  50. UROGRAFIN [Concomitant]
     Active Substance: DIATRIZOATE MEGLUMINE\DIATRIZOATE SODIUM
     Route: 048
     Dates: start: 20140424, end: 20140424
  51. BENDAMUSTINE [Suspect]
     Active Substance: BENDAMUSTINE
     Route: 042
     Dates: start: 20140128
  52. BENDAMUSTINE [Suspect]
     Active Substance: BENDAMUSTINE
     Dosage: CYCLE 2 DAY 2
     Route: 042
     Dates: start: 20140225
  53. FILGRASTIM [Concomitant]
     Active Substance: FILGRASTIM
     Dosage: 30 MU
     Route: 058
     Dates: start: 20140210, end: 20140214
  54. FILGRASTIM [Concomitant]
     Active Substance: FILGRASTIM
     Dosage: 48 MU
     Route: 058
     Dates: start: 20140224, end: 20140228
  55. FILGRASTIM [Concomitant]
     Active Substance: FILGRASTIM
     Dosage: 48 MU
     Route: 058
     Dates: start: 20140422, end: 20140426
  56. DEKORT [Concomitant]
     Active Substance: DEXAMETHASONE
     Route: 042
     Dates: start: 20140422, end: 20140422
  57. DEKORT [Concomitant]
     Active Substance: DEXAMETHASONE
     Route: 042
     Dates: start: 20140521, end: 20140521
  58. DEKORT [Concomitant]
     Active Substance: DEXAMETHASONE
     Route: 042
     Dates: start: 20140618, end: 20140618
  59. AVIL [Concomitant]
     Active Substance: PHENIRAMINE
     Route: 042
     Dates: start: 20140617, end: 20140617
  60. GRANISETRON [Concomitant]
     Active Substance: GRANISETRON
     Route: 042
     Dates: start: 20140224, end: 20140224
  61. GRANISETRON [Concomitant]
     Active Substance: GRANISETRON
     Route: 042
     Dates: start: 20140225, end: 20140225
  62. LEVOFLOXACIN. [Concomitant]
     Active Substance: LEVOFLOXACIN
     Route: 048
     Dates: start: 20140811, end: 20140905
  63. RANITIDIN [Concomitant]
     Active Substance: RANITIDINE HYDROCHLORIDE
     Route: 042
     Dates: start: 20140325, end: 20140325
  64. RANITIDIN [Concomitant]
     Active Substance: RANITIDINE HYDROCHLORIDE
     Route: 042
     Dates: start: 20140421, end: 20140421
  65. RANITIDIN [Concomitant]
     Active Substance: RANITIDINE HYDROCHLORIDE
     Route: 042
     Dates: start: 20140811, end: 20140827
  66. ERYTHROCYTE [Concomitant]
     Indication: ANAEMIA
     Route: 042
     Dates: start: 20140129, end: 20140129
  67. OMNIPAQUE [Concomitant]
     Active Substance: IOHEXOL
     Route: 042
     Dates: start: 20140903, end: 20140903
  68. UROGRAFIN [Concomitant]
     Active Substance: DIATRIZOATE MEGLUMINE\DIATRIZOATE SODIUM
     Route: 048
     Dates: start: 20140715, end: 20140715
  69. UROGRAFIN [Concomitant]
     Active Substance: DIATRIZOATE MEGLUMINE\DIATRIZOATE SODIUM
     Route: 048
     Dates: start: 20141229, end: 20141229
  70. OBINUTUZUMAB [Suspect]
     Active Substance: OBINUTUZUMAB
     Route: 042
     Dates: start: 20140520
  71. BENDAMUSTINE [Suspect]
     Active Substance: BENDAMUSTINE
     Dosage: CYCLE 4 DAY 1
     Route: 042
     Dates: start: 20140421
  72. BENDAMUSTINE [Suspect]
     Active Substance: BENDAMUSTINE
     Dosage: CYCLE 5 DAY 1 AND 2
     Route: 042
     Dates: start: 20140520
  73. FILGRASTIM [Concomitant]
     Active Substance: FILGRASTIM
     Dosage: 30 MU
     Route: 058
     Dates: start: 20140203, end: 20140207
  74. FILGRASTIM [Concomitant]
     Active Substance: FILGRASTIM
     Dosage: 48 MU
     Route: 058
     Dates: start: 20140903, end: 20140907
  75. FILGRASTIM [Concomitant]
     Active Substance: FILGRASTIM
     Dosage: 48 MU
     Route: 058
     Dates: start: 20141001, end: 20141005
  76. DEKORT [Concomitant]
     Active Substance: DEXAMETHASONE
     Route: 042
     Dates: start: 20140210, end: 20140210
  77. AVIL [Concomitant]
     Active Substance: PHENIRAMINE
     Route: 042
     Dates: start: 20140210, end: 20140210
  78. AVIL [Concomitant]
     Active Substance: PHENIRAMINE
     Route: 042
     Dates: start: 20140618, end: 20140618
  79. RANITIDIN [Concomitant]
     Active Substance: RANITIDINE HYDROCHLORIDE
     Route: 042
     Dates: start: 20140224, end: 20140224
  80. OMNIPAQUE [Concomitant]
     Active Substance: IOHEXOL
     Route: 042
     Dates: start: 20140715, end: 20140715
  81. OBINUTUZUMAB [Suspect]
     Active Substance: OBINUTUZUMAB
     Dosage: CYCLE 1 DAY 2
     Route: 042
     Dates: start: 20140128
  82. OBINUTUZUMAB [Suspect]
     Active Substance: OBINUTUZUMAB
     Route: 042
     Dates: start: 20140324
  83. BENDAMUSTINE [Suspect]
     Active Substance: BENDAMUSTINE
     Route: 042
     Dates: start: 20140618
  84. FILGRASTIM [Concomitant]
     Active Substance: FILGRASTIM
     Dosage: 48 MU
     Route: 058
     Dates: start: 20140811, end: 20140826
  85. DEKORT [Concomitant]
     Active Substance: DEXAMETHASONE
     Indication: PROPHYLAXIS
     Route: 042
     Dates: start: 20140127, end: 20140127
  86. DEKORT [Concomitant]
     Active Substance: DEXAMETHASONE
     Route: 042
     Dates: start: 20140128, end: 20140128
  87. DEKORT [Concomitant]
     Active Substance: DEXAMETHASONE
     Route: 042
     Dates: start: 20140324, end: 20140324
  88. AVIL [Concomitant]
     Active Substance: PHENIRAMINE
     Route: 042
     Dates: start: 20140128, end: 20140128
  89. AVIL [Concomitant]
     Active Substance: PHENIRAMINE
     Route: 042
     Dates: start: 20140203, end: 20140203
  90. AVIL [Concomitant]
     Active Substance: PHENIRAMINE
     Route: 042
     Dates: start: 20140520, end: 20140520
  91. GRANISETRON [Concomitant]
     Active Substance: GRANISETRON
     Route: 042
     Dates: start: 20140324, end: 20140324
  92. GRANISETRON [Concomitant]
     Active Substance: GRANISETRON
     Route: 042
     Dates: start: 20140617, end: 20140617
  93. ALLOPURINOL. [Concomitant]
     Active Substance: ALLOPURINOL
     Indication: PROPHYLAXIS
     Route: 048
     Dates: start: 20140127, end: 20140131
  94. OBINUTUZUMAB [Suspect]
     Active Substance: OBINUTUZUMAB
     Dosage: CYCLE 1 DAY 8
     Route: 042
     Dates: start: 20140203
  95. BENDAMUSTINE [Suspect]
     Active Substance: BENDAMUSTINE
     Dosage: CYCLE 3 DAY 1
     Route: 042
     Dates: start: 20140324
  96. BENDAMUSTINE [Suspect]
     Active Substance: BENDAMUSTINE
     Dosage: CYCLE 3 DAY 2
     Route: 042
     Dates: start: 20140325
  97. BENDAMUSTINE [Suspect]
     Active Substance: BENDAMUSTINE
     Dosage: CYCLE 4 DAY 2
     Route: 042
     Dates: start: 20140422
  98. DEKORT [Concomitant]
     Active Substance: DEXAMETHASONE
     Route: 042
     Dates: start: 20140203, end: 20140203
  99. DEKORT [Concomitant]
     Active Substance: DEXAMETHASONE
     Route: 042
     Dates: start: 20140421, end: 20140421
  100. AVIL [Concomitant]
     Active Substance: PHENIRAMINE
     Route: 042
     Dates: start: 20140224, end: 20140224
  101. GRANISETRON [Concomitant]
     Active Substance: GRANISETRON
     Route: 042
     Dates: start: 20140422, end: 20140422
  102. RANITIDIN [Concomitant]
     Active Substance: RANITIDINE HYDROCHLORIDE
     Indication: PROPHYLAXIS
     Route: 042
     Dates: start: 20140127, end: 20140127
  103. RANITIDIN [Concomitant]
     Active Substance: RANITIDINE HYDROCHLORIDE
     Route: 042
     Dates: start: 20140128, end: 20140128
  104. RANITIDIN [Concomitant]
     Active Substance: RANITIDINE HYDROCHLORIDE
     Route: 042
     Dates: start: 20140225, end: 20140225
  105. RANITIDIN [Concomitant]
     Active Substance: RANITIDINE HYDROCHLORIDE
     Route: 042
     Dates: start: 20140422, end: 20140422
  106. ERYTHROCYTE [Concomitant]
     Route: 042
     Dates: start: 20140813, end: 20140813

REACTIONS (4)
  - Febrile neutropenia [Recovered/Resolved]
  - Febrile neutropenia [Recovered/Resolved]
  - Pneumonia [Fatal]
  - Pneumonia [Recovered/Resolved]

NARRATIVE: CASE EVENT DATE: 20140810
